FAERS Safety Report 12452897 (Version 2)
Quarter: 2016Q2

REPORT INFORMATION
  Report Type: Spontaneous
  Country: US (occurrence: US)
  Receive Date: 20160609
  Receipt Date: 20160613
  Transmission Date: 20160815
  Serious: Yes (Hospitalization)
  Sender: FDA-Public Use
  Company Number: US-BAYER-2016-111745

PATIENT
  Age: 37 Year
  Sex: Male

DRUGS (1)
  1. HELIXATE FS [Suspect]
     Active Substance: ANTIHEMOPHILIC FACTOR, HUMAN RECOMBINANT
     Indication: FACTOR VIII DEFICIENCY
     Dosage: 4000 UNITS +/- 10%, TWICE DAILY AFTER SURGERY
     Route: 042

REACTIONS (2)
  - Rectal haemorrhage [Recovering/Resolving]
  - Proctalgia [Recovering/Resolving]

NARRATIVE: CASE EVENT DATE: 20160527
